FAERS Safety Report 17486081 (Version 1)
Quarter: 2020Q1

REPORT INFORMATION
  Report Type: Spontaneous
  Country: US (occurrence: US)
  Receive Date: 20200303
  Receipt Date: 20200303
  Transmission Date: 20200409
  Serious: No
  Sender: FDA-Public Use
  Company Number: US-GLENMARK PHARMACEUTICALS-2019GMK045109

PATIENT

DRUGS (7)
  1. MUPIROCIN OINTMENT USP, 2% [Suspect]
     Active Substance: MUPIROCIN
     Indication: STAPHYLOCOCCAL INFECTION
     Dosage: UNK, BID (TWICE A DAY- INTERMINENT)
     Route: 045
     Dates: start: 2019
  2. NIACIN. [Concomitant]
     Active Substance: NIACIN
     Indication: HIGH DENSITY LIPOPROTEIN DECREASED
     Dosage: 1000 MG, OD
     Route: 065
  3. GAMASTAN [Concomitant]
     Active Substance: HUMAN IMMUNOGLOBULIN G
     Indication: PRODUCT USED FOR UNKNOWN INDICATION
     Dosage: UNK (EVERY 2 WEEKS)
     Route: 030
  4. TESTOSTERONE. [Concomitant]
     Active Substance: TESTOSTERONE
     Indication: BLOOD TESTOSTERONE DECREASED
     Dosage: 2 PUMPS, EVERY DAY
     Route: 061
  5. VALACYCLOVIR [Concomitant]
     Active Substance: VALACYCLOVIR HYDROCHLORIDE
     Indication: EPSTEIN-BARR VIRUS INFECTION
     Dosage: 500 MG, BID (500 MG TABLET TWICE A DAY)
     Route: 065
  6. LYSINE [Concomitant]
     Active Substance: LYSINE
     Indication: EPSTEIN-BARR VIRUS INFECTION
     Dosage: 2 DF, BID (2 FAMCICLOVIR 250MG TABLETS TWICE A DAY TOGETHER WITH 500MG LYSINE)
     Route: 065
  7. FAMCICLOVIR. [Concomitant]
     Active Substance: FAMCICLOVIR
     Indication: EPSTEIN-BARR VIRUS INFECTION
     Dosage: 2 DF, BID (2 FAMCICLOVIR 250MG TABLETS TWICE A DAY TOGETHER WITH 500MG LYSINE)
     Route: 065

REACTIONS (6)
  - Product dispensing error [Unknown]
  - Product prescribing error [Unknown]
  - Incorrect route of product administration [Unknown]
  - Drug effective for unapproved indication [Unknown]
  - Application site pain [Recovered/Resolved]
  - Dysgeusia [Not Recovered/Not Resolved]

NARRATIVE: CASE EVENT DATE: 2019
